FAERS Safety Report 12337805 (Version 1)
Quarter: 2016Q2

REPORT INFORMATION
  Report Type: Spontaneous
  Country: FR (occurrence: FR)
  Receive Date: 20160505
  Receipt Date: 20160505
  Transmission Date: 20160815
  Serious: Yes (Other)
  Sender: FDA-Public Use
  Company Number: FR-TEVA-657405ISR

PATIENT
  Sex: Female

DRUGS (1)
  1. ANASTROZOLE. [Suspect]
     Active Substance: ANASTROZOLE
     Indication: BREAST CANCER

REACTIONS (7)
  - Adverse event [Unknown]
  - Haemorrhage [Unknown]
  - Hot flush [Unknown]
  - Arthralgia [Unknown]
  - Epistaxis [Unknown]
  - Migraine [Unknown]
  - Insomnia [Unknown]
